FAERS Safety Report 25827003 (Version 1)
Quarter: 2025Q3

REPORT INFORMATION
  Report Type: Spontaneous
  Country: US (occurrence: US)
  Receive Date: 20250920
  Receipt Date: 20250920
  Transmission Date: 20251021
  Serious: No
  Sender: ABBVIE
  Company Number: US-ABBVIE-6464055

PATIENT
  Sex: Female

DRUGS (1)
  1. UPADACITINIB [Suspect]
     Active Substance: UPADACITINIB
     Indication: Rheumatoid arthritis
     Route: 058
     Dates: start: 2020

REACTIONS (4)
  - Insomnia [Not Recovered/Not Resolved]
  - Abdominal rigidity [Unknown]
  - Gastric dilatation [Unknown]
  - Gastritis [Unknown]
